FAERS Safety Report 8540478-5 (Version None)
Quarter: 2012Q3

REPORT INFORMATION
  Report Type: 
  Country: None (occurrence: None)
  Receive Date: 20120726
  Receipt Date: 20120717
  Transmission Date: 20120928
  Serious: Yes (Hospitalization)
  Sender: FDA-Public Use
  Company Number: FR-ASTRAZENECA-2012SE50326

PATIENT
  Age: 60 Year
  Sex: Male

DRUGS (5)
  1. NEXIUM [Suspect]
     Route: 048
     Dates: start: 20120609, end: 20120619
  2. AUGMENTIN '500' [Concomitant]
     Dates: start: 20120528, end: 20120530
  3. AMOXICILLIN TRIHYDRATE [Suspect]
     Route: 048
     Dates: start: 20120613, end: 20120618
  4. ATORVASTATIN [Suspect]
     Route: 048
     Dates: start: 20120528, end: 20120621
  5. AMOXICILLIN TRIHYDRATE [Suspect]
     Route: 048
     Dates: start: 20120612, end: 20120613

REACTIONS (1)
  - CHOLESTASIS [None]
